FAERS Safety Report 9681122 (Version 4)
Quarter: 2016Q4

REPORT INFORMATION
  Report Type: Spontaneous
  Country: FR (occurrence: FR)
  Receive Date: 20131111
  Receipt Date: 20161122
  Transmission Date: 20170207
  Serious: Yes (Other)
  Sender: FDA-Public Use
  Company Number: FR-NOVOPROD-392008

PATIENT
  Age: 72 Year
  Sex: Female
  Weight: 90 kg

DRUGS (7)
  1. FUROSEMIDE. [Concomitant]
     Active Substance: FUROSEMIDE
     Dosage: 40 MG, UNK
  2. ZYLORIC [Concomitant]
     Active Substance: ALLOPURINOL
     Dosage: 100 MG, QD
  3. COZAAR [Concomitant]
     Active Substance: LOSARTAN POTASSIUM
     Dosage: 100 MG, QD
  4. COVERSYL                           /00790702/ [Concomitant]
     Active Substance: PERINDOPRIL
     Dosage: ONE DOSE DAILY
  5. KARDEGIC [Concomitant]
     Active Substance: ASPIRIN LYSINE
     Indication: CEREBROVASCULAR ACCIDENT
     Dosage: UNK
  6. KAYEXALATE [Concomitant]
     Active Substance: SODIUM POLYSTYRENE SULFONATE
     Dosage: ONE DOSE DAILY
  7. NOVOMIX 30 FLEXPEN [Suspect]
     Active Substance: INSULIN ASPART
     Indication: TYPE 2 DIABETES MELLITUS
     Dosage: 38 IU IN MORNING AND 18 IN EVENING
     Route: 065

REACTIONS (2)
  - Pyelonephritis [Recovered/Resolved]
  - Hyperglycaemia [Recovered/Resolved]
